FAERS Safety Report 4531730-9 (Version None)
Quarter: 2004Q4

REPORT INFORMATION
  Report Type: 
  Country: None (occurrence: None)
  Receive Date: 20041206
  Receipt Date: 20040923
  Transmission Date: 20050328
  Serious: No
  Sender: FDA-Public Use
  Company Number: USA040979129

PATIENT
  Sex: Female

DRUGS (1)
  1. CYMBALTA [Suspect]
     Dosage: 60 MG

REACTIONS (3)
  - NAUSEA [None]
  - PARAESTHESIA [None]
  - VISION BLURRED [None]
